FAERS Safety Report 4829808-5 (Version None)
Quarter: 2005Q4

REPORT INFORMATION
  Report Type: 
  Country: None (occurrence: None)
  Receive Date: 20051028
  Receipt Date: 20050831
  Transmission Date: 20060501
  Serious: No
  Sender: FDA-Public Use
  Company Number: US148761

PATIENT
  Age: 42 Year
  Sex: Female

DRUGS (6)
  1. SENSIPAR [Suspect]
     Dates: start: 20050701
  2. METOPROLOL [Concomitant]
  3. SEVELAMER HCL [Concomitant]
  4. TELMISARTAN [Concomitant]
  5. LABETALOL [Concomitant]
  6. NIFEDIPINE [Concomitant]

REACTIONS (1)
  - NAUSEA [None]
